FAERS Safety Report 22262012 (Version 1)
Quarter: 2023Q2

REPORT INFORMATION
  Report Type: Spontaneous
  Country: US (occurrence: US)
  Receive Date: 20230428
  Receipt Date: 20230428
  Transmission Date: 20230722
  Serious: No
  Sender: FDA-Public Use
  Company Number: US-CADILA HEALTHCARE LIMITED-US-ZYDUS-083319

PATIENT

DRUGS (2)
  1. HYDROXYCHLOROQUINE SULFATE [Suspect]
     Active Substance: HYDROXYCHLOROQUINE SULFATE
     Indication: Rheumatoid arthritis
     Dosage: 4800 4800, QD
     Route: 048
     Dates: start: 20220906, end: 20220930
  2. LOSARTAN [Concomitant]
     Active Substance: LOSARTAN
     Indication: Hypertension
     Dosage: 100 MILLIGRAM
     Route: 048

REACTIONS (6)
  - Rash [Recovering/Resolving]
  - Feeling hot [Recovering/Resolving]
  - Throat tightness [Recovered/Resolved]
  - Insomnia [Recovered/Resolved]
  - Urticaria [Recovering/Resolving]
  - Hypoaesthesia [Recovered/Resolved]

NARRATIVE: CASE EVENT DATE: 20220910
